FAERS Safety Report 8502447-0 (Version None)
Quarter: 2012Q3

REPORT INFORMATION
  Report Type: 
  Country: None (occurrence: None)
  Receive Date: 20120711
  Receipt Date: 20120702
  Transmission Date: 20120928
  Serious: Yes (Hospitalization, Other)
  Sender: FDA-Public Use
  Company Number: JP-VERTEX PHARMACEUTICALS INC.-AE-2012-007648

PATIENT
  Age: 68 Year
  Sex: Male

DRUGS (14)
  1. RIBAVIRIN [Concomitant]
     Indication: HEPATITIS C
     Route: 048
     Dates: start: 20120322, end: 20120417
  2. RIBAVIRIN [Concomitant]
     Route: 048
     Dates: start: 20120511
  3. PEGINTERFERON ALFA-2B [Concomitant]
     Indication: HEPATITIS C
     Route: 058
     Dates: start: 20120322
  4. PEGINTERFERON ALFA-2B [Concomitant]
     Route: 058
  5. NEXIUM [Concomitant]
     Route: 048
     Dates: start: 20120327
  6. INCIVEK [Suspect]
     Route: 048
     Dates: start: 20120511, end: 20120522
  7. RIBAVIRIN [Concomitant]
     Route: 048
     Dates: start: 20120418, end: 20120509
  8. AZUNOL GARGLE LIQUID [Concomitant]
     Dates: start: 20120425
  9. DIOVAN [Concomitant]
     Route: 048
     Dates: start: 20120327
  10. MUCOSTA [Concomitant]
     Route: 048
     Dates: start: 20120327, end: 20120509
  11. INCIVEK [Suspect]
     Indication: HEPATITIS C
     Route: 048
     Dates: start: 20120322, end: 20120417
  12. INCIVEK [Suspect]
     Route: 048
     Dates: start: 20120418, end: 20120509
  13. MARZULENE-S [Concomitant]
     Route: 048
     Dates: start: 20120327, end: 20120509
  14. ADALAT CC [Concomitant]
     Route: 048
     Dates: start: 20120327, end: 20120418

REACTIONS (6)
  - HAEMOGLOBIN DECREASED [None]
  - WHITE BLOOD CELL COUNT DECREASED [None]
  - DYSGEUSIA [None]
  - HAEMOLYTIC ANAEMIA [None]
  - MALAISE [None]
  - DECREASED APPETITE [None]
